FAERS Safety Report 5821714-2 (Version None)
Quarter: 2008Q3

REPORT INFORMATION
  Report Type: 
  Country: None (occurrence: None)
  Receive Date: 20080724
  Receipt Date: 20080716
  Transmission Date: 20090109
  Serious: Yes (Other)
  Sender: FDA-Public Use
  Company Number: MX-PFIZER INC-2008051599

PATIENT
  Sex: Female
  Weight: 64 kg

DRUGS (5)
  1. CELEBREX [Suspect]
     Indication: BACK PAIN
     Route: 048
     Dates: start: 20071101, end: 20080101
  2. CELEBREX [Suspect]
     Indication: ARTHRALGIA
     Route: 048
     Dates: start: 20071101, end: 20071101
  3. CELEBREX [Suspect]
     Route: 048
     Dates: start: 20080101, end: 20080101
  4. ARCOXIA [Concomitant]
     Route: 048
     Dates: start: 20050101, end: 20050101
  5. GLUCOSAMINE SULFATE [Concomitant]
     Route: 048
     Dates: start: 20050101, end: 20050101

REACTIONS (3)
  - HAEMOLYTIC ANAEMIA [None]
  - NEPHRITIS INTERSTITIAL [None]
  - RENAL FAILURE [None]
